FAERS Safety Report 20833373 (Version 2)
Quarter: 2022Q2

REPORT INFORMATION
  Report Type: Spontaneous
  Country: FR (occurrence: FR)
  Receive Date: 20220516
  Receipt Date: 20220527
  Transmission Date: 20220721
  Serious: Yes (Hospitalization, Other)
  Sender: FDA-Public Use
  Company Number: None

PATIENT
  Age: 50 Year
  Sex: Male
  Weight: 94 kg

DRUGS (4)
  1. DIAZEPAM [Suspect]
     Active Substance: DIAZEPAM
     Dosage: THERAPY START DATE AND END DATE : NASK
     Route: 048
  2. COCAINE [Suspect]
     Active Substance: COCAINE
     Dosage: THERAPY START DATE AND END DATE : NASK
     Route: 042
  3. COCAINE [Suspect]
     Active Substance: COCAINE
     Dosage: 3 DOSAGE FORMS DAILY; 3 COOKIES A DAY, THERAPY START DATE AND END DATE : NASK
     Route: 055
  4. CANNABIS SATIVA SUBSP. INDICA TOP [Concomitant]
     Active Substance: CANNABIS SATIVA SUBSP. INDICA TOP

REACTIONS (4)
  - Drug dependence [Recovering/Resolving]
  - Drug detoxification [Recovering/Resolving]
  - Drug dependence [Recovering/Resolving]
  - Drug dependence [Not Recovered/Not Resolved]
